FAERS Safety Report 7815180-5 (Version None)
Quarter: 2011Q4

REPORT INFORMATION
  Report Type: 
  Country: None (occurrence: None)
  Receive Date: 20111014
  Receipt Date: 20111007
  Transmission Date: 20120403
  Serious: Yes (Hospitalization, Other)
  Sender: FDA-Public Use
  Company Number: US-JNJFOC-20110804995

PATIENT
  Sex: Female
  Weight: 90.72 kg

DRUGS (1)
  1. LEVAQUIN [Suspect]
     Indication: SINUSITIS
     Route: 048
     Dates: start: 20020301, end: 20030801

REACTIONS (3)
  - TENDONITIS [None]
  - ROTATOR CUFF SYNDROME [None]
  - TENDON CALCIFICATION [None]
